FAERS Safety Report 15248212 (Version 2)
Quarter: 2020Q3

REPORT INFORMATION
  Report Type: Report from Study
  Country: FR (occurrence: FR)
  Receive Date: 20180807
  Receipt Date: 20181115
  Transmission Date: 20201105
  Serious: Yes (Hospitalization)
  Sender: FDA-Public Use
  Company Number: FR-ASTRAZENECA-2018SE98179

PATIENT
  Age: 25264 Day
  Sex: Female
  Weight: 55 kg

DRUGS (3)
  1. EXEMESTANE. [Suspect]
     Active Substance: EXEMESTANE
     Indication: HORMONE RECEPTOR POSITIVE BREAST CANCER
     Route: 065
     Dates: start: 20170725, end: 20180716
  2. TREMELIMUMAB. [Suspect]
     Active Substance: TREMELIMUMAB
     Indication: HORMONE RECEPTOR POSITIVE BREAST CANCER
     Route: 042
     Dates: start: 20170725, end: 20170725
  3. DURVALUMAB. [Suspect]
     Active Substance: DURVALUMAB
     Indication: HORMONE RECEPTOR POSITIVE BREAST CANCER
     Route: 042
     Dates: start: 20170830, end: 20171220

REACTIONS (1)
  - Pneumonia [Recovered/Resolved]

NARRATIVE: CASE EVENT DATE: 20180716
